FAERS Safety Report 10896761 (Version 1)
Quarter: 2015Q1

REPORT INFORMATION
  Report Type: Spontaneous
  Country: DE (occurrence: DE)
  Receive Date: 20150309
  Receipt Date: 20150309
  Transmission Date: 20150721
  Serious: Yes (Congenital Anomaly)
  Sender: FDA-Public Use
  Company Number: DE-RANBAXY-2015RR-93839

PATIENT
  Age: 1 Day
  Sex: Female

DRUGS (4)
  1. FOLSAURE [Concomitant]
     Active Substance: FOLIC ACID
     Indication: PROPHYLAXIS OF NEURAL TUBE DEFECT
     Dosage: UNKNOWN TRIMESTER
     Route: 064
  2. VOMEX A [Concomitant]
     Active Substance: DIMENHYDRINATE
     Indication: VOMITING IN PREGNANCY
     Dosage: FROM 3 TO 27.1 GESTATIONAL WEEK
     Route: 064
  3. SERTRALINE [Suspect]
     Active Substance: SERTRALINE HYDROCHLORIDE
     Indication: DEPRESSION
     Dosage: 100 MG, DAILY, FROM 0 TO 8.5 GESTATIONAL WEEK
     Route: 064
     Dates: start: 20131207, end: 20140206
  4. QUETIAPINE [Suspect]
     Active Substance: QUETIAPINE
     Indication: DEPRESSION
     Dosage: 100 MG, DAILY, FROM 0 TO 8.5 GESTATIONAL WEEK
     Route: 064
     Dates: start: 20131207, end: 20140206

REACTIONS (3)
  - Foetal exposure during pregnancy [None]
  - Teratoma benign [Recovered/Resolved with Sequelae]
  - Caesarean section [None]

NARRATIVE: CASE EVENT DATE: 20140829
